FAERS Safety Report 11028425 (Version 2)
Quarter: 2015Q2

REPORT INFORMATION
  Report Type: Spontaneous
  Country: US (occurrence: US)
  Receive Date: 20150414
  Receipt Date: 20150525
  Transmission Date: 20150821
  Serious: No
  Sender: FDA-Public Use
  Company Number: US-JNJFOC-20120706528

PATIENT
  Age: 38 Year
  Sex: Female
  Weight: 89.36 kg

DRUGS (1)
  1. TRINESSA [Suspect]
     Active Substance: ETHINYL ESTRADIOL\NORGESTIMATE
     Indication: MENSTRUAL CYCLE MANAGEMENT
     Route: 048
     Dates: start: 20120603

REACTIONS (2)
  - Product use issue [Not Recovered/Not Resolved]
  - Vaginal haemorrhage [Not Recovered/Not Resolved]

NARRATIVE: CASE EVENT DATE: 20120603
